FAERS Safety Report 11355687 (Version 2)
Quarter: 2016Q1

REPORT INFORMATION
  Report Type: Report from Study
  Country: US (occurrence: US)
  Receive Date: 20150807
  Receipt Date: 20160224
  Transmission Date: 20160525
  Serious: Yes (Hospitalization)
  Sender: FDA-Public Use
  Company Number: US-ABBVIE-15P-163-1426781-00

PATIENT
  Age: 32 Year
  Sex: Female

DRUGS (2)
  1. VIEKIRA PAK [Suspect]
     Active Substance: DASABUVIR\OMBITASVIR\PARITAPREVIR\RITONAVIR
     Indication: HEPATITIS C
     Dosage: 2 PINK IN THE AM; 1 BEIGE IN THE AM AND PM
     Route: 048
     Dates: start: 201505, end: 201508
  2. RIBAVIRIN. [Concomitant]
     Active Substance: RIBAVIRIN
     Indication: HEPATITIS C
     Route: 048
     Dates: start: 201505, end: 201508

REACTIONS (2)
  - Cellulitis [Recovered/Resolved]
  - Malaise [Recovering/Resolving]

NARRATIVE: CASE EVENT DATE: 201505
